FAERS Safety Report 7389652-4 (Version None)
Quarter: 2011Q2

REPORT INFORMATION
  Report Type: 
  Country: None (occurrence: None)
  Receive Date: 20110401
  Receipt Date: 20110328
  Transmission Date: 20111010
  Serious: Yes (Hospitalization, Other)
  Sender: FDA-Public Use
  Company Number: FR-PFIZER INC-2011067858

PATIENT
  Age: 79 Year
  Sex: Male

DRUGS (14)
  1. CARDENSIEL [Concomitant]
     Dosage: 5 MG, 1X/DAY
     Route: 048
  2. SEROPRAM [Concomitant]
     Indication: DEPRESSION
     Dosage: 20 MG, 2X/DAY
  3. ZESTRIL [Concomitant]
     Dosage: 20 MG, 1X/DAY
     Route: 048
  4. LYRICA [Suspect]
     Indication: NEURALGIA
     Dosage: 450 MG, DAILY
     Route: 048
     Dates: start: 20100622, end: 20100628
  5. NITRODERM [Concomitant]
     Dosage: 1 DF, 1X/DAY
     Route: 062
  6. LASIX [Concomitant]
     Dosage: 160 MG, 1X/DAY
  7. LANSOPRAZOLE [Concomitant]
     Dosage: 15 MG, 1X/DAY
     Route: 048
     Dates: end: 20100629
  8. HEMIGOXINE NATIVELLE [Concomitant]
     Dosage: 0.125 MG, 1X/DAY
     Route: 048
  9. MYSOLINE [Concomitant]
     Indication: FAMILIAL TREMOR
     Dosage: 250 MG, 3X/DAY
     Route: 048
  10. SYMBICORT TURBUHALER ^ASTRAZENECA^ [Concomitant]
     Dosage: 1 DF, 2X/DAY
     Route: 055
     Dates: end: 20100629
  11. XANAX [Concomitant]
     Dosage: 0.25 MG, 2X/DAY
     Route: 048
  12. ZYLORIC ^GLAXO WELLCOME^ [Concomitant]
     Dosage: 200 MG, 1X/DAY
     Route: 048
     Dates: end: 20100629
  13. PREVISCAN [Concomitant]
     Dosage: 20 MG, 1X/DAY
     Route: 048
  14. ALDACTONE [Concomitant]
     Dosage: 12.5 MG, 2X/DAY
     Route: 048

REACTIONS (11)
  - LOBAR PNEUMONIA [None]
  - BLOOD OSMOLARITY INCREASED [None]
  - GAIT DISTURBANCE [None]
  - GENERAL PHYSICAL CONDITION ABNORMAL [None]
  - BACK PAIN [None]
  - HEART RATE INCREASED [None]
  - DISTURBANCE IN ATTENTION [None]
  - MACROCYTOSIS [None]
  - SOMNOLENCE [None]
  - OVERDOSE [None]
  - AZOTAEMIA [None]
